FAERS Safety Report 6680379-0 (Version None)
Quarter: 2010Q2

REPORT INFORMATION
  Report Type: 
  Country: None (occurrence: None)
  Receive Date: 20100412
  Receipt Date: 20100308
  Transmission Date: 20101027
  Serious: Yes (Hospitalization)
  Sender: FDA-Public Use
  Company Number: 54973 AE# 243

PATIENT
  Age: 6 Month
  Sex: Male

DRUGS (1)
  1. TEETHING TABLETS [Suspect]
     Indication: TEETHING
     Dosage: 2-3 TABS/DAY X 1 WEEK

REACTIONS (3)
  - ASTHMA [None]
  - CHANGE OF BOWEL HABIT [None]
  - LACTOSE INTOLERANCE [None]
